FAERS Safety Report 4960269-1 (Version None)
Quarter: 2006Q2

REPORT INFORMATION
  Report Type: 
  Country: None (occurrence: None)
  Receive Date: 20060403
  Receipt Date: 20060327
  Transmission Date: 20061013
  Serious: Yes (Hospitalization)
  Sender: FDA-Public Use
  Company Number: FR-RB-2997-2006

PATIENT
  Age: 35 Year
  Sex: Male

DRUGS (2)
  1. BUPRENORPHINE HCL [Suspect]
     Route: 042
     Dates: start: 20020101, end: 20060131
  2. FLUNITRAZEPAM [Concomitant]
     Indication: SLEEP DISORDER
     Route: 048
     Dates: start: 19950101, end: 20060131

REACTIONS (2)
  - ACCIDENTAL NEEDLE STICK [None]
  - INTENTIONAL DRUG MISUSE [None]
